FAERS Safety Report 10089146 (Version 3)
Quarter: 2014Q2

REPORT INFORMATION
  Report Type: Report from Study
  Country: US (occurrence: US)
  Receive Date: 20140421
  Receipt Date: 20140512
  Transmission Date: 20141212
  Serious: Yes (Life-Threatening, Hospitalization)
  Sender: FDA-Public Use
  Company Number: US-CELGENEUS-163-21880-14042878

PATIENT
  Age: 56 Year
  Sex: Male
  Weight: 76.9 kg

DRUGS (31)
  1. REVLIMID [Suspect]
     Indication: ACUTE MYELOID LEUKAEMIA
     Dosage: 15 MILLIGRAM
     Route: 048
     Dates: start: 20140329, end: 20140404
  2. REVLIMID [Suspect]
     Dosage: 15 MILLIGRAM
     Route: 048
     Dates: start: 2014
  3. MITOXANTRONE [Suspect]
     Indication: ACUTE MYELOID LEUKAEMIA
     Route: 065
     Dates: start: 20140405, end: 20140409
  4. ETOPOSIDE [Suspect]
     Indication: ACUTE MYELOID LEUKAEMIA
     Route: 065
     Dates: start: 20140405, end: 20140409
  5. CYTARABINE [Suspect]
     Indication: ACUTE MYELOID LEUKAEMIA
     Route: 065
     Dates: start: 20130919
  6. CYTARABINE [Suspect]
     Route: 065
     Dates: start: 20131219, end: 20140126
  7. CYTARABINE [Suspect]
     Route: 065
     Dates: start: 20140327
  8. CYTARABINE [Suspect]
     Route: 065
     Dates: start: 20140405, end: 20140409
  9. ACYCLOVIR [Concomitant]
     Indication: ANTIVIRAL PROPHYLAXIS
     Dosage: 800 MILLIGRAM
     Route: 048
     Dates: start: 20140304
  10. DIFLUCAN [Concomitant]
     Indication: FUNGAL INFECTION
     Dosage: 400 MILLIGRAM
     Route: 048
     Dates: start: 20140327, end: 20140413
  11. ZOSYN [Concomitant]
     Indication: BACTERAEMIA
     Dosage: 18 GRAM
     Route: 041
     Dates: start: 20140413, end: 20140416
  12. LEVAQUIN [Concomitant]
     Indication: SEPSIS
     Route: 048
     Dates: start: 201312
  13. LEVAQUIN [Concomitant]
     Indication: ESCHERICHIA INFECTION
     Dosage: 750 MILLIGRAM
     Route: 048
     Dates: start: 201404
  14. CASPOFUNGIN [Concomitant]
     Indication: CANDIDA SEPSIS
     Dosage: 50 MILLIGRAM
     Route: 041
     Dates: start: 20131022, end: 20140228
  15. CASPOFUNGIN [Concomitant]
     Indication: SEPSIS
     Dosage: 50 MILLIGRAM
     Route: 041
     Dates: start: 20140413
  16. CASPOFUNGIN [Concomitant]
     Route: 065
  17. EPINEPHRINE [Concomitant]
     Indication: PRODUCT USED FOR UNKNOWN INDICATION
     Route: 065
     Dates: start: 20140416
  18. NOREPINEPHRINE [Concomitant]
     Indication: PRODUCT USED FOR UNKNOWN INDICATION
     Route: 065
     Dates: start: 20140416
  19. VASOPRESSIN [Concomitant]
     Indication: PRODUCT USED FOR UNKNOWN INDICATION
     Route: 065
     Dates: start: 20140416
  20. TRAMADOL [Concomitant]
     Indication: MUSCULOSKELETAL STIFFNESS
     Route: 048
  21. NEUPOGEN [Concomitant]
     Indication: PRODUCT USED FOR UNKNOWN INDICATION
     Dosage: 480MCG/0.8ML
     Route: 058
     Dates: start: 201404
  22. PLATELETS [Concomitant]
     Indication: PRODUCT USED FOR UNKNOWN INDICATION
     Dosage: 1 UNIT
     Route: 041
     Dates: start: 201404, end: 201404
  23. NORVASC [Concomitant]
     Indication: PRODUCT USED FOR UNKNOWN INDICATION
     Dosage: 10 MILLIGRAM
     Route: 048
  24. LIPITOR [Concomitant]
     Indication: PRODUCT USED FOR UNKNOWN INDICATION
     Dosage: 10 MILLIGRAM
     Route: 048
  25. ATARAX [Concomitant]
     Indication: PRODUCT USED FOR UNKNOWN INDICATION
     Dosage: 100 MILLIGRAM
     Route: 048
  26. CLARITIN [Concomitant]
     Indication: PRODUCT USED FOR UNKNOWN INDICATION
     Route: 048
  27. ZOFRAN [Concomitant]
     Indication: PRODUCT USED FOR UNKNOWN INDICATION
     Dosage: 24 MILLIGRAM
     Route: 048
  28. PROTONIX [Concomitant]
     Indication: PRODUCT USED FOR UNKNOWN INDICATION
     Dosage: 40 MILLIGRAM
     Route: 048
  29. COMPAZINE [Concomitant]
     Indication: NAUSEA
     Dosage: 40 MILLIGRAM
     Route: 048
  30. COMPAZINE [Concomitant]
     Indication: VOMITING
  31. PACKED RED BLOOD CELLS [Concomitant]
     Indication: PRODUCT USED FOR UNKNOWN INDICATION
     Dosage: 2 UNITS
     Route: 041
     Dates: start: 201404, end: 201404

REACTIONS (1)
  - Sepsis [Recovered/Resolved]
